FAERS Safety Report 9366176 (Version 2)
Quarter: 2013Q4

REPORT INFORMATION
  Report Type: Not Available
  Country: FR (occurrence: FR)
  Receive Date: 20130625
  Receipt Date: 20131018
  Transmission Date: 20140711
  Serious: Yes (Hospitalization)
  Sender: FDA-Public Use
  Company Number: FR-ASTELLAS-2013EU005234

PATIENT
  Age: 79 Year
  Sex: Female

DRUGS (13)
  1. PROTOPIC [Suspect]
     Indication: PRURITUS
     Dosage: 1 DF, UID/QD
     Route: 061
     Dates: start: 20120705, end: 20121007
  2. PROTOPIC [Suspect]
     Indication: PRURIGO
  3. POLARAMINE [Suspect]
     Indication: PRURITUS
     Dosage: 2 MG, UID/QD
     Route: 048
     Dates: start: 20120705, end: 20121007
  4. POLARAMINE [Suspect]
     Indication: PRURIGO
  5. AERIUS /01398501/ [Suspect]
     Indication: PRURITUS
     Dosage: 2 DF, UNKNOWN/D
     Route: 048
     Dates: start: 20120705, end: 20121007
  6. AERIUS /01398501/ [Suspect]
     Indication: PRURIGO
  7. PREVISCAN                          /00789001/ [Concomitant]
     Dosage: UNK
     Route: 065
  8. CORDARONE [Concomitant]
     Dosage: UNK
     Route: 065
  9. CARDENSIEL [Concomitant]
     Dosage: UNK
     Route: 065
  10. DIAMICRON [Concomitant]
     Dosage: UNK
     Route: 065
  11. LEVOTHYROX [Concomitant]
     Dosage: UNK
     Route: 065
  12. LASIX                              /00032601/ [Concomitant]
     Dosage: UNK
     Route: 065
  13. ZOLPIDEM [Concomitant]
     Dosage: UNK
     Route: 065

REACTIONS (4)
  - Dyspnoea [Unknown]
  - Cardiac failure [Recovered/Resolved]
  - Atrial fibrillation [Recovering/Resolving]
  - Bundle branch block left [Unknown]
